FAERS Safety Report 17879995 (Version 1)
Quarter: 2020Q2

REPORT INFORMATION
  Report Type: Spontaneous
  Country: US (occurrence: US)
  Receive Date: 20200610
  Receipt Date: 20200610
  Transmission Date: 20200714
  Serious: No
  Sender: FDA-Public Use
  Company Number: None

PATIENT
  Age: 22 Year
  Sex: Female
  Weight: 63.45 kg

DRUGS (1)
  1. WILATE - VON WILLEBRAND FACTOR/COAGULATION FACTOR VIII COMPLEX (HUMAN) [Suspect]
     Active Substance: HUMAN COAGULATION FACTOR VIII/VON WILLEBRAND FACTOR COMPLEX
     Indication: VON WILLEBRAND^S DISEASE
     Dosage: ?          OTHER FREQUENCY:PRIOR TO PROCEDUR;?
     Route: 042

REACTIONS (5)
  - Malaise [None]
  - Heart rate decreased [None]
  - Visual impairment [None]
  - Hyperhidrosis [None]
  - Vision blurred [None]

NARRATIVE: CASE EVENT DATE: 20200608
